FAERS Safety Report 24271539 (Version 2)
Quarter: 2024Q3

REPORT INFORMATION
  Report Type: Spontaneous
  Country: DE (occurrence: DE)
  Receive Date: 20240901
  Receipt Date: 20240917
  Transmission Date: 20241017
  Serious: Yes (Hospitalization)
  Sender: JOHNSON AND JOHNSON
  Company Number: DE-JNJFOC-20240872062

PATIENT
  Sex: Male

DRUGS (2)
  1. ERLEADA [Suspect]
     Active Substance: APALUTAMIDE
     Indication: Prostate cancer
     Route: 048
     Dates: start: 20240627
  2. TRENANTONE [Concomitant]
     Active Substance: LEUPROLIDE ACETATE
     Dates: start: 201302

REACTIONS (1)
  - Cerebral infarction [Not Recovered/Not Resolved]
